FAERS Safety Report 20956095 (Version 1)
Quarter: 2022Q2

REPORT INFORMATION
  Report Type: Spontaneous
  Country: US (occurrence: US)
  Receive Date: 20220614
  Receipt Date: 20220614
  Transmission Date: 20220720
  Serious: No
  Sender: FDA-Public Use
  Company Number: US-PFM-2020-15335

PATIENT
  Sex: Female
  Weight: 6.349 kg

DRUGS (2)
  1. HEMANGEOL [Suspect]
     Active Substance: PROPRANOLOL HYDROCHLORIDE
     Indication: Birth mark
     Dosage: 1.8 ML, BID (2/DAY)WITH FOOD AS DIRECTED
     Route: 048
  2. HEMANGEOL [Suspect]
     Active Substance: PROPRANOLOL HYDROCHLORIDE
     Indication: Off label use

REACTIONS (4)
  - Alopecia [Unknown]
  - Sleep disorder [Unknown]
  - Off label use [Unknown]
  - Product use in unapproved indication [Unknown]
